FAERS Safety Report 16416778 (Version 2)
Quarter: 2019Q3

REPORT INFORMATION
  Report Type: Spontaneous
  Country: FR (occurrence: FR)
  Receive Date: 20190611
  Receipt Date: 20190820
  Transmission Date: 20191004
  Serious: Yes (Hospitalization)
  Sender: FDA-Public Use
  Company Number: FR-TEVA-2019-FR-1060867

PATIENT
  Age: 73 Year
  Sex: Female

DRUGS (8)
  1. EUPRESSYL 60 MG, G?LULE [Suspect]
     Active Substance: URAPIDIL
     Indication: HYPERTENSION
     Route: 065
  2. KETAMINE PANPHARMA [Suspect]
     Active Substance: KETAMINE
     Indication: GENERAL ANAESTHESIA
     Route: 042
     Dates: start: 20190510, end: 20190510
  3. SUFENTA [Suspect]
     Active Substance: SUFENTANIL CITRATE
     Indication: GENERAL ANAESTHESIA
     Route: 042
     Dates: start: 20190510, end: 20190510
  4. CEFAZOLINE PANPHARMA [Suspect]
     Active Substance: CEFAZOLIN SODIUM
     Indication: ANTIBIOTIC PROPHYLAXIS
     Route: 042
     Dates: start: 20190510, end: 20190510
  5. PROPOFOL FRESENIUS 1 %, ?MULSION INJECTABLE ET POUR PERFUSION [Suspect]
     Active Substance: PROPOFOL
     Indication: GENERAL ANAESTHESIA
     Route: 042
     Dates: start: 20190510, end: 20190510
  6. PROPRANOLOL [Suspect]
     Active Substance: PROPRANOLOL HYDROCHLORIDE
     Indication: HYPERTENSION
     Dosage: 1/2 CP IN THE MORNING, 1/4 CP IN THE EVENING
     Route: 042
     Dates: start: 20190510, end: 20190510
  7. CISATRACURIUM ACCORD [Suspect]
     Active Substance: CISATRACURIUM BESYLATE
     Indication: GENERAL ANAESTHESIA
     Route: 042
     Dates: start: 20190510, end: 20190510
  8. PROPRANOLOL [Suspect]
     Active Substance: PROPRANOLOL HYDROCHLORIDE
     Indication: GENERAL ANAESTHESIA
     Dosage: 1/2 CP IN THE MORNING, 1/4 CP IN THE EVENING
     Route: 048

REACTIONS (1)
  - Anaphylactic shock [Recovered/Resolved]

NARRATIVE: CASE EVENT DATE: 20190510
